FAERS Safety Report 7962687-6 (Version None)
Quarter: 2011Q4

REPORT INFORMATION
  Report Type: 
  Country: None (occurrence: None)
  Receive Date: 20111207
  Receipt Date: 20111130
  Transmission Date: 20120403
  Serious: Yes (Other)
  Sender: FDA-Public Use
  Company Number: CA-ABBOTT-11P-028-0880134-00

PATIENT
  Age: 59 Year
  Sex: Female

DRUGS (6)
  1. TETRACYCLINE [Suspect]
     Indication: PNEUMONIA
     Dates: end: 20111015
  2. BUCKLEY'S MIXTURE [Suspect]
     Dosage: 25 - 30 ML, OD PRN
     Route: 048
     Dates: start: 20110101, end: 20111001
  3. VENTOLIN [Concomitant]
     Indication: PRODUCT USED FOR UNKNOWN INDICATION
  4. BUCKLEY'S MIXTURE [Suspect]
     Indication: COUGH
     Dosage: 25 - 30 ML, OD PRN
     Route: 048
     Dates: start: 20111001
  5. REACTINE [Concomitant]
     Indication: PRODUCT USED FOR UNKNOWN INDICATION
  6. BIAXIN [Suspect]
     Indication: PNEUMONIA

REACTIONS (8)
  - DYSPNOEA [None]
  - ANAPHYLACTIC REACTION [None]
  - ABDOMINAL DISCOMFORT [None]
  - PNEUMONIA [None]
  - THERAPEUTIC RESPONSE UNEXPECTED [None]
  - WHEEZING [None]
  - PHARYNGEAL OEDEMA [None]
  - OFF LABEL USE [None]
